FAERS Safety Report 7603834-5 (Version None)
Quarter: 2011Q3

REPORT INFORMATION
  Report Type: 
  Country: None (occurrence: None)
  Receive Date: 20110712
  Receipt Date: 20110704
  Transmission Date: 20111222
  Serious: Yes (Hospitalization)
  Sender: FDA-Public Use
  Company Number: LT-GLAXOSMITHKLINE-B0732127A

PATIENT
  Age: 23 Year
  Sex: Female
  Weight: 60 kg

DRUGS (5)
  1. ACETAMINOPHEN [Suspect]
     Indication: SUICIDE ATTEMPT
     Route: 048
  2. ATORVASTATIN CALCIUM [Suspect]
     Indication: SUICIDE ATTEMPT
     Route: 048
  3. DICLAC [Suspect]
     Indication: SUICIDE ATTEMPT
     Route: 048
  4. CEFUROXIME [Suspect]
     Indication: SUICIDE ATTEMPT
     Route: 048
  5. ALCOHOL [Suspect]
     Indication: SUICIDE ATTEMPT

REACTIONS (6)
  - SOMNOLENCE [None]
  - SUICIDE ATTEMPT [None]
  - HEADACHE [None]
  - DIZZINESS [None]
  - NAUSEA [None]
  - VOMITING [None]
